FAERS Safety Report 4690975-8 (Version None)
Quarter: 2005Q2

REPORT INFORMATION
  Report Type: 
  Country: None (occurrence: None)
  Receive Date: 20050610
  Receipt Date: 20050531
  Transmission Date: 20051028
  Serious: Yes (Hospitalization)
  Sender: FDA-Public Use
  Company Number: RS005236-J

PATIENT
  Age: 83 Year
  Sex: Male
  Weight: 55 kg

DRUGS (5)
  1. RABEPRAZOLE SODIUM [Suspect]
     Indication: REFLUX OESOPHAGITIS
     Dosage: SEE IMAGE
     Route: 048
     Dates: start: 20040623, end: 20040914
  2. RABEPRAZOLE SODIUM [Suspect]
     Indication: REFLUX OESOPHAGITIS
     Dosage: SEE IMAGE
     Route: 048
     Dates: start: 20040915
  3. CLARITHROMYCIN [Concomitant]
  4. AMLODIPIN (AMLODIPINE BESILATE) [Concomitant]
  5. SELBEX (TEPRENONE) [Concomitant]

REACTIONS (3)
  - BRONCHITIS [None]
  - CONDITION AGGRAVATED [None]
  - PNEUMONIA [None]
